FAERS Safety Report 9839514 (Version 3)
Quarter: 2014Q1

REPORT INFORMATION
  Report Type: Report from Study
  Country: CA (occurrence: CA)
  Receive Date: 20140124
  Receipt Date: 20140127
  Transmission Date: 20141002
  Serious: Yes (Other)
  Sender: FDA-Public Use
  Company Number: CA-ROCHE-1305081

PATIENT
  Age: 35 Year
  Sex: Male
  Weight: 100 kg

DRUGS (7)
  1. AVASTIN [Suspect]
     Indication: GLIOBLASTOMA
     Route: 042
     Dates: start: 20131031
  2. DEXAMETHASONE [Concomitant]
  3. BIOCAL [Concomitant]
  4. COVERSYL [Concomitant]
  5. TAMSULOSIN [Concomitant]
  6. RANITIDINE [Concomitant]
  7. METFORMIN [Concomitant]

REACTIONS (5)
  - Platelet count decreased [Recovered/Resolved]
  - Confusional state [Unknown]
  - Frostbite [Unknown]
  - Weight increased [Unknown]
  - Disease progression [Unknown]
